FAERS Safety Report 19650122 (Version 3)
Quarter: 2022Q4

REPORT INFORMATION
  Report Type: Report from Study
  Country: DE (occurrence: DE)
  Receive Date: 20210803
  Receipt Date: 20221208
  Transmission Date: 20230113
  Serious: Yes (Hospitalization)
  Sender: FDA-Public Use
  Company Number: DE-UCBSA-2020050090

PATIENT
  Sex: Male

DRUGS (4)
  1. CERTOLIZUMAB PEGOL [Suspect]
     Active Substance: CERTOLIZUMAB PEGOL
     Indication: Axial spondyloarthritis
     Dosage: 400 MILLIGRAM
     Dates: start: 20200507, end: 2020
  2. CERTOLIZUMAB PEGOL [Suspect]
     Active Substance: CERTOLIZUMAB PEGOL
     Dosage: 200 MILLIGRAM, EV 2 WEEKS(QOW)
     Dates: start: 2020, end: 20201002
  3. IBUPROFEN [Concomitant]
     Active Substance: IBUPROFEN
     Indication: Product used for unknown indication
     Dosage: 200 MILLIGRAM, WEEKLY (QW)
     Dates: start: 20200730, end: 20200830
  4. ETORICOXIB [Concomitant]
     Active Substance: ETORICOXIB
     Indication: Product used for unknown indication
     Dosage: 90 MILLIGRAM, EV 2 DAYS (QOD) PER WEEK
     Dates: start: 20201005

REACTIONS (4)
  - Synovitis [Recovered/Resolved]
  - Arthritis [Recovered/Resolved]
  - Hypochromic anaemia [Unknown]
  - Nausea [Unknown]

NARRATIVE: CASE EVENT DATE: 20200101
